FAERS Safety Report 10290676 (Version 1)
Quarter: 2014Q3

REPORT INFORMATION
  Report Type: Spontaneous
  Country: FR (occurrence: None)
  Receive Date: 20140708
  Receipt Date: 20140708
  Transmission Date: 20150326
  Serious: Yes (Life-Threatening, Hospitalization)
  Sender: FDA-Public Use
  Company Number: AUR-APL-2014-06922

PATIENT
  Age: 45 Year
  Sex: Female

DRUGS (8)
  1. ISOPTIN [Suspect]
     Active Substance: VERAPAMIL HYDROCHLORIDE
     Indication: PRODUCT USED FOR UNKNOWN INDICATION
     Dates: start: 20140414, end: 20140414
  2. STILNOX (ZOLPIDEM TARTRATE) [Concomitant]
  3. ZYLORIC (ALLOPURINOL) TABLET [Suspect]
     Active Substance: ALLOPURINOL
     Indication: PRODUCT USED FOR UNKNOWN INDICATION
     Dates: start: 20140414, end: 20140414
  4. RAMIPRIL TABLET (RAMIPRIL) TABLET, UNKNOWN [Suspect]
     Active Substance: RAMIPRIL
     Indication: PRODUCT USED FOR UNKNOWN INDICATION
     Route: 048
     Dates: start: 20140414, end: 20140414
  5. CRESTOR [Suspect]
     Active Substance: ROSUVASTATIN CALCIUM
     Indication: PRODUCT USED FOR UNKNOWN INDICATION
     Dates: start: 20140414, end: 20140414
  6. DUOPLAVIN (ACETYLSALICYLIC ACID, CLOPIDOGREL BISULFATE) TABLET [Suspect]
     Active Substance: ASPIRIN\CLOPIDOGREL
     Indication: PRODUCT USED FOR UNKNOWN INDICATION
     Route: 048
     Dates: start: 20140414, end: 20140414
  7. PARACETAMOL (PARACETAMOL) TABLET [Suspect]
     Active Substance: ACETAMINOPHEN
     Indication: PRODUCT USED FOR UNKNOWN INDICATION
     Dates: start: 20140414, end: 20140414
  8. INEXIUM (ESOMEPRAZOLE MAGNESIUM) [Suspect]
     Active Substance: ESOMEPRAZOLE MAGNESIUM
     Indication: PRODUCT USED FOR UNKNOWN INDICATION
     Dates: start: 20140414, end: 20140414

REACTIONS (12)
  - Cardiogenic shock [None]
  - Suicide attempt [None]
  - Lung disorder [None]
  - Pseudomonas infection [None]
  - Coma [None]
  - Renal failure acute [None]
  - Intentional overdose [None]
  - Hypokalaemia [None]
  - Leukocytosis [None]
  - Toxicity to various agents [None]
  - Shock [None]
  - Electrocardiogram abnormal [None]

NARRATIVE: CASE EVENT DATE: 20140414
